FAERS Safety Report 15667224 (Version 1)
Quarter: 2018Q4

REPORT INFORMATION
  Report Type: Spontaneous
  Country: US (occurrence: US)
  Receive Date: 20181128
  Receipt Date: 20181128
  Transmission Date: 20190205
  Serious: No
  Sender: FDA-Public Use
  Company Number: US-ROCHE-2116874

PATIENT
  Age: 49 Year
  Sex: Male
  Weight: 87.62 kg

DRUGS (2)
  1. OCREVUS [Suspect]
     Active Substance: OCRELIZUMAB
     Indication: RELAPSING-REMITTING MULTIPLE SCLEROSIS
     Dosage: FIRST TWO HALF OCREVUS DOSES ;ONGOING: NO
     Route: 042
     Dates: start: 201710, end: 201710
  2. OCREVUS [Suspect]
     Active Substance: OCRELIZUMAB
     Dosage: FULL OCREVUS DOSE;ONGOING: YES
     Route: 042
     Dates: start: 20180329

REACTIONS (2)
  - Joint stiffness [Not Recovered/Not Resolved]
  - Arthralgia [Not Recovered/Not Resolved]

NARRATIVE: CASE EVENT DATE: 20180101
